FAERS Safety Report 26144449 (Version 2)
Quarter: 2025Q4

REPORT INFORMATION
  Report Type: Spontaneous
  Country: EU (occurrence: EU)
  Receive Date: 20251211
  Receipt Date: 20251229
  Transmission Date: 20260117
  Serious: Yes (Other)
  Sender: ROCHE
  Company Number: None

PATIENT
  Sex: Female

DRUGS (8)
  1. VENETOCLAX [Suspect]
     Active Substance: VENETOCLAX
     Indication: Chronic lymphocytic leukaemia
     Route: 048
  2. VENETOCLAX [Suspect]
     Active Substance: VENETOCLAX
     Indication: Mantle cell lymphoma
  3. RITUXIMAB [Suspect]
     Active Substance: RITUXIMAB
     Indication: Chronic lymphocytic leukaemia
  4. RITUXIMAB [Suspect]
     Active Substance: RITUXIMAB
     Indication: Mantle cell lymphoma
  5. JAYPIRCA [Suspect]
     Active Substance: PIRTOBRUTINIB
     Indication: Chronic lymphocytic leukaemia
  6. JAYPIRCA [Suspect]
     Active Substance: PIRTOBRUTINIB
     Indication: Mantle cell lymphoma
  7. IMBRUVICA [Suspect]
     Active Substance: IBRUTINIB
     Indication: Chronic lymphocytic leukaemia
  8. IMBRUVICA [Suspect]
     Active Substance: IBRUTINIB
     Indication: Mantle cell lymphoma

REACTIONS (2)
  - Chronic lymphocytic leukaemia [Unknown]
  - Drug ineffective [Unknown]
